FAERS Safety Report 18427570 (Version 3)
Quarter: 2022Q2

REPORT INFORMATION
  Report Type: Spontaneous
  Country: US (occurrence: US)
  Receive Date: 20201026
  Receipt Date: 20220418
  Transmission Date: 20220721
  Serious: No
  Sender: FDA-Public Use
  Company Number: US-PFIZER INC-2020390630

PATIENT
  Age: 50 Year

DRUGS (1)
  1. PREMPRO [Suspect]
     Active Substance: ESTROGENS, CONJUGATED\MEDROXYPROGESTERONE ACETATE
     Indication: Menopause
     Dosage: UNK

REACTIONS (6)
  - Product prescribing error [Unknown]
  - Pain [Unknown]
  - Migraine [Unknown]
  - Headache [Unknown]
  - Thyroid disorder [Unknown]
  - Hot flush [Unknown]
